FAERS Safety Report 5928981-5 (Version None)
Quarter: 2008Q4

REPORT INFORMATION
  Report Type: 
  Country: None (occurrence: None)
  Receive Date: 20081024
  Receipt Date: 20081015
  Transmission Date: 20090506
  Serious: Yes (Death)
  Sender: FDA-Public Use
  Company Number: JP-JNJFOC-20080804166

PATIENT
  Sex: Male

DRUGS (3)
  1. FINIBAX [Suspect]
     Indication: INFECTION
     Route: 041
  2. ZOLADEX [Suspect]
     Indication: PROSTATE CANCER
     Route: 058
  3. CASODEX [Concomitant]
     Indication: PROSTATE CANCER
     Route: 048

REACTIONS (1)
  - LIVER DISORDER [None]
